FAERS Safety Report 8736224 (Version 3)
Quarter: 2012Q4

REPORT INFORMATION
  Report Type: 
  Country: PR (occurrence: PR)
  Receive Date: 20120822
  Receipt Date: 20120928
  Transmission Date: 20130627
  Serious: Yes (Other)
  Sender: FDA-Public Use
  Company Number: PR-ABBOTT-12P-131-0970047-00

PATIENT
  Age: 58 None
  Sex: Female
  Weight: 67.65 kg

DRUGS (13)
  1. HUMIRA 40 MG/0.8 ML PEN [Suspect]
     Indication: RHEUMATOID ARTHRITIS
     Route: 058
     Dates: end: 20120815
  2. HUMIRA 40 MG/0.8 ML PEN [Suspect]
     Route: 058
     Dates: start: 20120904
  3. METHOTREXATE [Suspect]
     Indication: RHEUMATOID ARTHRITIS
     Route: 065
     Dates: start: 2009, end: 2010
  4. METFORMIN [Concomitant]
     Indication: DIABETES MELLITUS
     Dosage: 1 Tablet daily
     Route: 048
     Dates: start: 2011
  5. ONGLYZA [Concomitant]
     Indication: DIABETES MELLITUS
     Dosage: 1/2 of 5 mg tablet daily
     Route: 048
     Dates: start: 2011
  6. LOSARTAN [Concomitant]
     Indication: HYPERTENSION
     Dosage: 1 Tablet daily
     Route: 048
     Dates: start: 201207
  7. ALBUTEROL [Concomitant]
     Indication: LUNG NEOPLASM
     Dosage: 2- 2 mg tablets daily
     Route: 048
  8. QVAR [Concomitant]
     Indication: LUNG NEOPLASM
     Dosage: 2 times daily
     Route: 048
  9. PROVENTIL [Concomitant]
     Indication: LUNG NEOPLASM
     Dosage: 2 times daily
     Route: 048
  10. PROTONIX [Concomitant]
     Indication: GASTRIC ULCER
     Dosage: 1 Tablet daily
     Route: 048
  11. INTESTINEX [Concomitant]
     Indication: COLITIS
     Dosage: 1 Capsule daily
     Route: 048
  12. LEVSIN [Concomitant]
     Indication: COLITIS
     Dosage: 1 Tablet daily
     Route: 048
  13. TEMAZEPAM [Concomitant]
     Indication: PRODUCT USED FOR UNKNOWN INDICATION
     Dosage: 1 Capsule daily
     Route: 048

REACTIONS (6)
  - Breast mass [Not Recovered/Not Resolved]
  - Diabetes mellitus [Not Recovered/Not Resolved]
  - Hypothyroidism [Not Recovered/Not Resolved]
  - Pulmonary mass [Not Recovered/Not Resolved]
  - Headache [Recovered/Resolved]
  - Thyroid neoplasm [Not Recovered/Not Resolved]
